FAERS Safety Report 5530740-2 (Version None)
Quarter: 2007Q4

REPORT INFORMATION
  Report Type: 
  Country: None (occurrence: None)
  Receive Date: 20071127
  Receipt Date: 20071127
  Transmission Date: 20080405
  Serious: Yes (Other)
  Sender: FDA-Public Use
  Company Number: None

PATIENT
  Age: 61 Year
  Sex: Female
  Weight: 117.9352 kg

DRUGS (1)
  1. MS CONTIN [Suspect]
     Indication: NEUROPATHY PERIPHERAL
     Dosage: 60 MG TID PO
     Route: 048

REACTIONS (6)
  - CONDITION AGGRAVATED [None]
  - MALAISE [None]
  - PAIN [None]
  - PHARMACEUTICAL PRODUCT COMPLAINT [None]
  - TOOTH EXTRACTION [None]
  - WITHDRAWAL SYNDROME [None]
